FAERS Safety Report 11380564 (Version 1)
Quarter: 2015Q3

REPORT INFORMATION
  Report Type: Spontaneous
  Country: US (occurrence: US)
  Receive Date: 20150814
  Receipt Date: 20150814
  Transmission Date: 20151125
  Serious: No
  Sender: FDA-Public Use
  Company Number: US-JNJFOC-20150320461

PATIENT
  Age: 65 Year
  Sex: Female
  Weight: 84.37 kg

DRUGS (3)
  1. OXYCODONE [Interacting]
     Active Substance: OXYCODONE
     Indication: PAIN
     Route: 065
  2. ELMIRON [Suspect]
     Active Substance: PENTOSAN POLYSULFATE SODIUM
     Indication: PRODUCT USED FOR UNKNOWN INDICATION
     Route: 048
     Dates: start: 201503
  3. FENTANYL. [Interacting]
     Active Substance: FENTANYL
     Indication: PAIN
     Route: 065

REACTIONS (3)
  - Somnolence [Not Recovered/Not Resolved]
  - Walking aid user [Unknown]
  - Drug interaction [Unknown]

NARRATIVE: CASE EVENT DATE: 201503
